FAERS Safety Report 17415495 (Version 5)
Quarter: 2024Q4

REPORT INFORMATION
  Report Type: Spontaneous
  Country: DE (occurrence: DE)
  Receive Date: 20200213
  Receipt Date: 20241106
  Transmission Date: 20250115
  Serious: Yes (Death, Life-Threatening, Hospitalization, Other)
  Sender: MYLAN
  Company Number: DE-GLAXOSMITHKLINE-DE2019EME142804

PATIENT
  Sex: Female
  Weight: 52 kg

DRUGS (38)
  1. PREDNISOLONE [Suspect]
     Active Substance: PREDNISOLONE
     Indication: Systemic lupus erythematosus
     Dosage: 5 MG, QD
     Route: 065
     Dates: start: 1988
  2. VALSARTAN [Suspect]
     Active Substance: VALSARTAN
     Indication: Systemic lupus erythematosus
     Dosage: UNK
     Route: 065
  3. VALSARTAN [Suspect]
     Active Substance: VALSARTAN
     Dosage: UNK UNK, QD (UNK UNK, BID 160 (1-0-1))
     Route: 065
  4. ACYCLOVIR [Suspect]
     Active Substance: ACYCLOVIR
     Indication: Systemic lupus erythematosus
     Dosage: UNK
     Route: 065
  5. ACYCLOVIR [Suspect]
     Active Substance: ACYCLOVIR
     Dosage: 400 MILLIGRAM, QD (400 MG, TID)
     Route: 065
  6. ACYCLOVIR [Suspect]
     Active Substance: ACYCLOVIR
     Dosage: 1200 MILLIGRAM, QD (400 MG, TID)
  7. MOLSIDOMINE [Suspect]
     Active Substance: MOLSIDOMINE
     Indication: Systemic lupus erythematosus
     Dosage: UNK
  8. MOLSIDOMINE [Suspect]
     Active Substance: MOLSIDOMINE
     Dosage: UNK UNK, QD (UNK UNK, QD 8 RET (0-0-1))
     Route: 065
  9. AZATHIOPRINE [Suspect]
     Active Substance: AZATHIOPRINE
     Indication: White blood cell count decreased
     Dosage: 50 MG
     Route: 065
     Dates: start: 20100419, end: 201907
  10. AZATHIOPRINE [Suspect]
     Active Substance: AZATHIOPRINE
     Indication: Systemic lupus erythematosus
     Dosage: UNK
     Route: 065
     Dates: start: 1997, end: 2008
  11. AZATHIOPRINE [Suspect]
     Active Substance: AZATHIOPRINE
     Indication: Lymphopenia
     Dosage: 50 MG
     Route: 065
     Dates: start: 20100419, end: 201904
  12. AZATHIOPRINE [Suspect]
     Active Substance: AZATHIOPRINE
     Dosage: 50 MILLIGRAM
     Dates: start: 201906, end: 201907
  13. LEVOTHYROXINE SODIUM [Suspect]
     Active Substance: LEVOTHYROXINE SODIUM
     Indication: Systemic lupus erythematosus
     Dosage: UNK
     Route: 065
  14. FLUVASTATIN [Suspect]
     Active Substance: FLUVASTATIN SODIUM
     Indication: Systemic lupus erythematosus
     Dosage: UNK
     Route: 065
  15. FLUVASTATIN [Suspect]
     Active Substance: FLUVASTATIN SODIUM
     Dosage: UNK UNK, QD, UNK UNK, QD 20 (0-0-1)
     Route: 065
  16. BENLYSTA [Suspect]
     Active Substance: BELIMUMAB
     Indication: White blood cell count decreased
     Dosage: 10 MILLIGRAM/KILOGRAM, QWK
     Route: 058
     Dates: start: 201711, end: 201812
  17. BENLYSTA [Suspect]
     Active Substance: BELIMUMAB
     Indication: Systemic lupus erythematosus
     Dosage: 200 MILLIGRAM, QW
     Route: 058
     Dates: start: 201806, end: 201807
  18. BENLYSTA [Suspect]
     Active Substance: BELIMUMAB
     Dosage: 200 MILLIGRAM/KILOGRAM, QWK
     Route: 058
     Dates: start: 201708, end: 201904
  19. PENTACARINAT [Suspect]
     Active Substance: PENTAMIDINE ISETHIONATE
     Indication: Systemic lupus erythematosus
     Dosage: UNK
  20. PENTACARINAT [Suspect]
     Active Substance: PENTAMIDINE ISETHIONATE
     Dosage: UNK
     Dates: start: 201904
  21. DETRUSITOL [Suspect]
     Active Substance: TOLTERODINE TARTRATE
     Indication: Systemic lupus erythematosus
     Dosage: UNK
     Route: 065
  22. ELIQUIS [Suspect]
     Active Substance: APIXABAN
     Indication: Systemic lupus erythematosus
     Dosage: UNK
     Route: 065
  23. ELIQUIS [Suspect]
     Active Substance: APIXABAN
     Dosage: 2.5 MILLIGRAM (2.5 MG)
     Route: 065
  24. MORPHINE [Suspect]
     Active Substance: MORPHINE
     Indication: Systemic lupus erythematosus
     Dosage: UNK
     Route: 065
  25. MORPHINE [Suspect]
     Active Substance: MORPHINE
     Dosage: UNK (UNK, 20 TO S5X/D,)
     Route: 065
  26. HYDROXYCHLOROQUINE [Concomitant]
     Active Substance: HYDROXYCHLOROQUINE
     Indication: Product used for unknown indication
     Dosage: 200 MILLIGRAM
     Dates: start: 1994, end: 1997
  27. HYDROXYCHLOROQUINE [Concomitant]
     Active Substance: HYDROXYCHLOROQUINE
     Dosage: 200 MILLIGRAM, QD (200 MG, QD (0-0-1))
     Route: 065
     Dates: start: 2008
  28. MCP                                /00041902/ [Concomitant]
     Indication: Product used for unknown indication
     Dosage: UNK UNK, QD (UNK UNK, TID 10)
  29. CHOLECALCIFEROL [Concomitant]
     Active Substance: CHOLECALCIFEROL
     Indication: Product used for unknown indication
     Dosage: UNK UNK, QW (UNK UNK, WE, 20000)
  30. LAXATAN M [Concomitant]
     Indication: Product used for unknown indication
     Dosage: UNK
  31. NITRENDIPINE [Concomitant]
     Active Substance: NITRENDIPINE
     Indication: Product used for unknown indication
     Dosage: UNK
  32. MORPHIN                            /00036302/ [Concomitant]
     Indication: Product used for unknown indication
     Dosage: UNK, QD (UNK UNK, BID 30 RET (1-0-1))
  33. UMECLIDINIUM BROMIDE\VILANTEROL TRIFENATATE [Concomitant]
     Active Substance: UMECLIDINIUM BROMIDE\VILANTEROL TRIFENATATE
     Indication: Product used for unknown indication
     Dosage: UNK (UNK, 55/221 PUSH)
  34. EZETIMIBE [Concomitant]
     Active Substance: EZETIMIBE
     Indication: Product used for unknown indication
     Dosage: UNK UNK, QD (UNK UNK, QD 10 (0-0-1))
  35. ISDN [Concomitant]
     Indication: Product used for unknown indication
     Dosage: UNK UNK, QD (UNK UNK, BID20 RET (1-1-0))
  36. LEVOTHYROXINE SODIUM [Concomitant]
     Active Substance: LEVOTHYROXINE SODIUM
     Indication: Product used for unknown indication
     Dosage: UNK UNK, QD (UNK UNK, QD 50 (1-0-0))
  37. DULOXETINE [Concomitant]
     Active Substance: DULOXETINE
     Indication: Product used for unknown indication
     Dosage: UNK UNK, QD (UNK UNK, QD 30 (1-0-0))
  38. SAB SIMPLEX                        /00159501/ [Concomitant]
     Indication: Product used for unknown indication
     Dosage: UNK (UNK, 30GTT TO 3X/D)

REACTIONS (31)
  - Peritonitis [Fatal]
  - Lymphopenia [Fatal]
  - Sepsis [Fatal]
  - Pneumocystis jirovecii pneumonia [Fatal]
  - Leukopenia [Unknown]
  - Intentional product use issue [Unknown]
  - Off label use [Unknown]
  - Product use in unapproved indication [Unknown]
  - Erysipelas [Unknown]
  - Anxiety disorder [Unknown]
  - Gastritis haemorrhagic [Unknown]
  - Fall [Unknown]
  - Coombs positive haemolytic anaemia [Unknown]
  - Skin disorder [Unknown]
  - Gastrooesophageal reflux disease [Unknown]
  - Colitis ulcerative [Unknown]
  - Antiphospholipid syndrome [Unknown]
  - Pleuritic pain [Unknown]
  - Hyperlipidaemia [Unknown]
  - Osteonecrosis [Unknown]
  - Hypertension [Unknown]
  - Hypothyroidism [Unknown]
  - Antinuclear antibody negative [Unknown]
  - Systemic lupus erythematosus [Unknown]
  - Depression [Unknown]
  - Complex regional pain syndrome [Unknown]
  - Pancreatitis acute [Unknown]
  - Urinary tract infection [Unknown]
  - Herpes simplex reactivation [Unknown]
  - Thrombocytopenia [Unknown]
  - Drug hypersensitivity [Unknown]

NARRATIVE: CASE EVENT DATE: 19900101
